FAERS Safety Report 10411452 (Version 2)
Quarter: 2014Q4

REPORT INFORMATION
  Report Type: Spontaneous
  Country: CH (occurrence: CH)
  Receive Date: 20140827
  Receipt Date: 20141003
  Transmission Date: 20150528
  Serious: Yes (Life-Threatening, Hospitalization, Other)
  Sender: FDA-Public Use
  Company Number: CH-009507513-1408CHE011182

PATIENT
  Age: 32 Year
  Sex: Female

DRUGS (4)
  1. ADALAT [Interacting]
     Active Substance: NIFEDIPINE
     Indication: TOCOLYSIS
     Dosage: DAILY DOSE: 60 MG
     Route: 048
     Dates: start: 20140722, end: 20140723
  2. ADALAT [Interacting]
     Active Substance: NIFEDIPINE
     Dosage: DAILY DOSE: 90 MG
     Dates: start: 20140727, end: 20140728
  3. CELESTONE CHRONODOSE [Suspect]
     Active Substance: BETAMETHASONE ACETATE\BETAMETHASONE SODIUM PHOSPHATE
     Indication: MATERNAL THERAPY TO ENHANCE FOETAL LUNG MATURITY
     Dosage: TOTAL DAILY DOSE: 12 MG (2 VIALS) ONCE PER DAY
     Route: 030
     Dates: start: 20140722, end: 20140723
  4. ADALAT [Interacting]
     Active Substance: NIFEDIPINE
     Dosage: DAILY DOSE: 120 MG
     Route: 048
     Dates: start: 20140724, end: 20140725

REACTIONS (6)
  - Dyspnoea [Recovered/Resolved]
  - Off label use [Recovered/Resolved]
  - Drug interaction [Recovered/Resolved]
  - Weight increased [Recovered/Resolved]
  - Orthopnoea [Recovered/Resolved]
  - Acute pulmonary oedema [Recovered/Resolved]

NARRATIVE: CASE EVENT DATE: 201407
